FAERS Safety Report 25889994 (Version 1)
Quarter: 2025Q4

REPORT INFORMATION
  Report Type: Spontaneous
  Country: CA (occurrence: CA)
  Receive Date: 20251007
  Receipt Date: 20251007
  Transmission Date: 20260117
  Serious: Yes (Other)
  Sender: NOVARTIS
  Company Number: CA-002147023-NVSC2025CA152611

PATIENT
  Age: 70 Year
  Sex: Female

DRUGS (1)
  1. LEQVIO [Suspect]
     Active Substance: INCLISIRAN SODIUM
     Indication: Type IIa hyperlipidaemia
     Dosage: 284 MG (1 EVERY 6 MONTHS)
     Route: 058

REACTIONS (6)
  - Fatigue [Unknown]
  - Cough [Unknown]
  - Headache [Unknown]
  - Influenza like illness [Unknown]
  - Pain [Unknown]
  - Inappropriate schedule of product administration [Unknown]
